FAERS Safety Report 8461258-5 (Version None)
Quarter: 2012Q2

REPORT INFORMATION
  Report Type: 
  Country: None (occurrence: None)
  Receive Date: 20120619
  Receipt Date: 20120619
  Transmission Date: 20120825
  Serious: Yes (Other)
  Sender: FDA-Public Use
  Company Number: None

PATIENT
  Sex: Female

DRUGS (4)
  1. GEODON [Suspect]
     Indication: BIPOLAR DISORDER
     Dosage: 40 MG TWICE A DAY PO
     Route: 048
     Dates: start: 20120611, end: 20120617
  2. GEODON [Suspect]
     Indication: BORDERLINE PERSONALITY DISORDER
     Dosage: 40 MG TWICE A DAY PO
     Route: 048
     Dates: start: 20120611, end: 20120617
  3. GEODON [Suspect]
     Indication: SCHIZOPHRENIA
     Dosage: 40 MG TWICE A DAY PO
     Route: 048
     Dates: start: 20120611, end: 20120617
  4. GEODON [Suspect]
     Indication: OBSESSIVE-COMPULSIVE DISORDER
     Dosage: 40 MG TWICE A DAY PO
     Route: 048
     Dates: start: 20120611, end: 20120617

REACTIONS (6)
  - SUICIDAL IDEATION [None]
  - UNEVALUABLE EVENT [None]
  - ORAL DISORDER [None]
  - INSOMNIA [None]
  - OEDEMA MOUTH [None]
  - DIZZINESS [None]
